FAERS Safety Report 9351169 (Version 2)
Quarter: 2014Q1

REPORT INFORMATION
  Report Type: Spontaneous
  Country: US (occurrence: US)
  Receive Date: 20130617
  Receipt Date: 20140210
  Transmission Date: 20141002
  Serious: No
  Sender: FDA-Public Use
  Company Number: US-009507513-1306USA006804

PATIENT
  Sex: Female

DRUGS (2)
  1. JANUVIA [Suspect]
     Indication: DIABETES MELLITUS
     Dosage: 25 MG/ONCE DAILY, 1 UNIT OF USE BOTTLE OF 90
     Route: 048
     Dates: start: 201112
  2. GLYBURIDE [Concomitant]
     Dosage: UNK

REACTIONS (2)
  - Exposure during pregnancy [Unknown]
  - No adverse event [Unknown]
